FAERS Safety Report 24624896 (Version 1)
Quarter: 2024Q4

REPORT INFORMATION
  Report Type: Spontaneous
  Country: GB (occurrence: GB)
  Receive Date: 20241115
  Receipt Date: 20241115
  Transmission Date: 20250115
  Serious: Yes (Other)
  Sender: FERRING
  Company Number: None

PATIENT

DRUGS (1)
  1. DINOPROSTONE [Suspect]
     Active Substance: DINOPROSTONE
     Indication: Labour induction
     Dosage: 10 MG SLOW RELEASE
     Route: 065
     Dates: start: 20241101, end: 20241101

REACTIONS (2)
  - Uterine hyperstimulation [Recovered/Resolved]
  - Postpartum haemorrhage [Unknown]

NARRATIVE: CASE EVENT DATE: 20241101
